FAERS Safety Report 24263734 (Version 1)
Quarter: 2024Q3

REPORT INFORMATION
  Report Type: Spontaneous
  Country: NO (occurrence: NO)
  Receive Date: 20240829
  Receipt Date: 20240829
  Transmission Date: 20241017
  Serious: Yes (Other)
  Sender: TEVA
  Company Number: None

PATIENT
  Age: 40 Year
  Sex: Female
  Weight: 86 kg

DRUGS (3)
  1. LISDEXAMFETAMINE DIMESYLATE [Suspect]
     Active Substance: LISDEXAMFETAMINE DIMESYLATE
     Indication: Attention deficit hyperactivity disorder
     Route: 048
     Dates: start: 202407, end: 20240728
  2. Topimax [Concomitant]
     Indication: Migraine prophylaxis
     Dosage: 2 X 50 MG DAILY
     Route: 065
  3. AJOVY [Concomitant]
     Active Substance: FREMANEZUMAB-VFRM
     Indication: Migraine
     Dosage: AJOVY INJ, OPL 225 MG/PEN
     Route: 065

REACTIONS (10)
  - Arrhythmia [Recovered/Resolved]
  - Dizziness [Unknown]
  - Dry mouth [Recovering/Resolving]
  - Headache [Unknown]
  - Insomnia [Recovered/Resolved]
  - Muscular weakness [Unknown]
  - Cold sweat [Unknown]
  - Heart rate increased [Unknown]
  - Blood pressure decreased [Recovered/Resolved]
  - Nausea [Unknown]
